FAERS Safety Report 6927744-1 (Version None)
Quarter: 2010Q3

REPORT INFORMATION
  Report Type: 
  Country: None (occurrence: None)
  Receive Date: 20100817
  Receipt Date: 20100811
  Transmission Date: 20110219
  Serious: Yes (Life-Threatening, Hospitalization, Other)
  Sender: FDA-Public Use
  Company Number: US-BAYER-201013624BCC

PATIENT
  Age: 72 Year
  Sex: Female
  Weight: 98 kg

DRUGS (7)
  1. ALEVE (CAPLET) [Suspect]
     Indication: ARTHRITIS
     Dosage: TOTAL DAILY DOSE: 440 MG  UNIT DOSE: 220 MG
     Route: 048
     Dates: start: 20080101, end: 20090401
  2. ENALAPRIL [Concomitant]
     Route: 065
  3. GLIPIZIDE [Concomitant]
     Route: 065
  4. INSULIN [Concomitant]
     Dosage: TOTAL DAILY DOSE: 8 U  UNIT DOSE: 1 U
     Route: 065
  5. ASPIRIN [Concomitant]
     Dosage: TOTAL DAILY DOSE: 81 MG  UNIT DOSE: 81 MG
     Route: 048
  6. ASCORBIC ACID [Concomitant]
     Dosage: TOTAL DAILY DOSE: 1 DF  UNIT DOSE: 1 DF
     Route: 065
  7. FERROUS SULFATE [Concomitant]
     Route: 065

REACTIONS (7)
  - BLOOD CHOLESTEROL INCREASED [None]
  - INTESTINAL GANGRENE [None]
  - RED BLOOD CELL COUNT ABNORMAL [None]
  - RENAL DISORDER [None]
  - SPLEEN DISORDER [None]
  - ULCER HAEMORRHAGE [None]
  - WHITE BLOOD CELL COUNT ABNORMAL [None]
